FAERS Safety Report 8352703-4 (Version None)
Quarter: 2012Q2

REPORT INFORMATION
  Report Type: 
  Country: None (occurrence: None)
  Receive Date: 20120511
  Receipt Date: 20120503
  Transmission Date: 20120825
  Serious: Yes (Hospitalization, Other)
  Sender: FDA-Public Use
  Company Number: US-BAYER-2011-114250

PATIENT
  Age: 28 Year
  Sex: Female
  Weight: 117.91 kg

DRUGS (27)
  1. OXYBUTYNIN [Concomitant]
     Dosage: 5 MG, UNK
     Route: 048
  2. ZITHROMAX [Concomitant]
  3. DOXYCYCLINE [Concomitant]
  4. LAMICTAL [Concomitant]
     Dosage: 100 MG, UNK
     Route: 048
  5. OXYBUTYNIN [Concomitant]
     Dosage: 5 MG, UNK
     Dates: start: 20090415
  6. FENTANYL CITRATE [Concomitant]
     Dosage: 25 ?G, EVERY THREE DAYS
     Route: 062
  7. IBUPROFEN [Concomitant]
     Dosage: UNK
     Dates: start: 19830101
  8. CIPROFLOXACIN [Concomitant]
     Dosage: 500 MG, UNK
     Route: 048
     Dates: start: 20090501
  9. HYDROCODONE BITARTRATE/HOMATROPINE METHYBROMIDE [Concomitant]
     Dosage: 5-1.5
     Dates: start: 20090425
  10. NASONEX [Concomitant]
     Dosage: 50 MCQ
     Dates: start: 20090425
  11. PROTONIX [Concomitant]
  12. YAZ [Suspect]
  13. DOXEPIN HCL [Concomitant]
     Dosage: 100 MG, EVERY MORNING
     Route: 048
  14. EFFEXOR XR [Concomitant]
     Dosage: 150 MG, UNK
     Route: 048
  15. ALBUTEROL [Concomitant]
     Indication: ASTHMA
     Dosage: UNK
     Dates: start: 19830101
  16. CEFDINIR [Concomitant]
     Dosage: 300 MG, UNK
     Dates: start: 20090415
  17. ABILIFY [Concomitant]
     Dosage: 40 MG, EVERY MORNING
     Route: 048
  18. NEURONTIN [Concomitant]
     Dosage: 300 MG, TID
     Route: 048
  19. PHENERGAN EXPECTORANT W/ CODEINE [Concomitant]
     Dosage: UNK, PRN
     Route: 048
     Dates: start: 20090520
  20. YAZ [Suspect]
     Indication: PREMENSTRUAL SYNDROME
     Dosage: UNK
     Route: 048
     Dates: start: 20090101, end: 20090101
  21. TRAMADOL HYDROCHLORIDE [Concomitant]
     Dosage: 50 MG, UNK
     Route: 048
  22. LASIX [Concomitant]
     Dosage: 10 MG, EVERY MORNING
     Route: 048
  23. METHADONE HCL [Concomitant]
     Dosage: 5 MG, QID
     Route: 048
  24. AZITHROMYCIN [Concomitant]
     Dosage: 250 MG, UNK
     Route: 048
     Dates: start: 20090314
  25. TORADOL [Concomitant]
     Dosage: 30 MG, UNK
     Route: 041
     Dates: start: 20090520
  26. PROMETHAZINE [Concomitant]
     Dosage: 25 MG, UNK
     Route: 048
     Dates: start: 20090314
  27. PEPCID [Concomitant]

REACTIONS (9)
  - MIGRAINE [None]
  - PULMONARY EMBOLISM [None]
  - DEPRESSION [None]
  - THROMBOSIS [None]
  - INJURY [None]
  - PAIN [None]
  - LUNG DISORDER [None]
  - ANXIETY [None]
  - DEEP VEIN THROMBOSIS [None]
